FAERS Safety Report 20302890 (Version 1)
Quarter: 2022Q1

REPORT INFORMATION
  Report Type: Report from Study
  Country: JP (occurrence: JP)
  Receive Date: 20220106
  Receipt Date: 20220106
  Transmission Date: 20220423
  Serious: Yes (Death, Life-Threatening, Hospitalization, Other)
  Sender: FDA-Public Use
  Company Number: JP-AUROBINDO-AUR-APL-2019-048969

PATIENT
  Age: 75 Year
  Sex: Male
  Weight: 51.3 kg

DRUGS (8)
  1. FOLOTYN [Suspect]
     Active Substance: PRALATREXATE
     Indication: Peripheral T-cell lymphoma unspecified
     Dosage: 25 MILLIGRAM/SQ. METER
     Route: 042
     Dates: start: 20180404, end: 20180411
  2. FOLOTYN [Suspect]
     Active Substance: PRALATREXATE
     Dosage: 25 MILLIGRAM/SQ. METER
     Route: 042
     Dates: start: 20180502, end: 20180509
  3. FOLOTYN [Suspect]
     Active Substance: PRALATREXATE
     Dosage: 25 MILLIGRAM/SQ. METER
     Route: 042
     Dates: start: 20180523, end: 20180530
  4. FOLOTYN [Suspect]
     Active Substance: PRALATREXATE
     Dosage: 25 MILLIGRAM/SQ. METER
     Route: 042
     Dates: start: 20180612, end: 20180619
  5. FOLOTYN [Suspect]
     Active Substance: PRALATREXATE
     Dosage: 25 MILLIGRAM/SQ. METER
     Route: 042
     Dates: start: 20180710, end: 20180717
  6. LEUCOVORIN CALCIUM [Concomitant]
     Active Substance: LEUCOVORIN CALCIUM
     Indication: Prophylaxis
     Dosage: 30 MG/DAY; DAY3-6
     Route: 048
     Dates: start: 20180406
  7. FOLIC ACID [Concomitant]
     Active Substance: FOLIC ACID
     Indication: Prophylaxis
     Dosage: UNK
     Route: 048
     Dates: start: 20180326
  8. VITAMIN B12 [Concomitant]
     Active Substance: CYANOCOBALAMIN
     Indication: Prophylaxis
     Dosage: UNK
     Route: 030
     Dates: start: 20180402, end: 20180402

REACTIONS (6)
  - Disease progression [Fatal]
  - Anaemia [Recovering/Resolving]
  - Hyponatraemia [Not Recovered/Not Resolved]
  - Platelet count decreased [Recovering/Resolving]
  - Hyperphosphatasaemia [Not Recovered/Not Resolved]
  - Stomatitis [Recovered/Resolved]

NARRATIVE: CASE EVENT DATE: 20180406
